FAERS Safety Report 15150000 (Version 3)
Quarter: 2019Q1

REPORT INFORMATION
  Report Type: Report from Study
  Country: GR (occurrence: GR)
  Receive Date: 20180716
  Receipt Date: 20190131
  Transmission Date: 20190417
  Serious: Yes (Life-Threatening, Hospitalization)
  Sender: FDA-Public Use
  Company Number: GR-AMGEN-GRCNI2018095711

PATIENT
  Age: 62 Year
  Sex: Female
  Weight: 61 kg

DRUGS (11)
  1. CARFILZOMIB [Suspect]
     Active Substance: CARFILZOMIB
     Indication: PLASMA CELL MYELOMA
     Dosage: 85 MG, UNK
     Route: 042
     Dates: start: 20180227
  2. ABSTRAL [Concomitant]
     Active Substance: FENTANYL CITRATE
     Dosage: 100 MUG, UNK
     Dates: start: 20180228
  3. ARANESP [Concomitant]
     Active Substance: DARBEPOETIN ALFA
     Dosage: 500 MUG, UNK
     Dates: start: 20180227
  4. CRUZAFEN [Concomitant]
     Dosage: 8 MG, UNK
     Dates: start: 20180306
  5. CARFILZOMIB [Suspect]
     Active Substance: CARFILZOMIB
     Dosage: 56 MG/M2, UNK
     Route: 042
     Dates: start: 20180606
  6. FENTANYL. [Concomitant]
     Active Substance: FENTANYL
     Dosage: 25 MUG, UNK
     Dates: start: 20180228
  7. DEXAMETHASONE. [Suspect]
     Active Substance: DEXAMETHASONE
     Indication: PLASMA CELL MYELOMA
     Dosage: 8-40 MG, UNK
     Route: 065
     Dates: start: 20180227
  8. VALTREX [Concomitant]
     Active Substance: VALACYCLOVIR HYDROCHLORIDE
     Dosage: 500 MG, UNK
     Dates: start: 20140401
  9. NOXAFIL [Concomitant]
     Active Substance: POSACONAZOLE
     Dosage: 100 MG, UNK
     Dates: start: 20180108
  10. ZARZIO [Concomitant]
     Active Substance: FILGRASTIM
     Dosage: 30 UNK, UNK
     Dates: start: 20180406
  11. TRAMAL [Concomitant]
     Active Substance: TRAMADOL
     Dosage: 50 MG, UNK
     Dates: start: 20180228

REACTIONS (1)
  - Respiratory tract infection [Recovered/Resolved]

NARRATIVE: CASE EVENT DATE: 20180618
